FAERS Safety Report 5611497-3 (Version None)
Quarter: 2008Q1

REPORT INFORMATION
  Report Type: 
  Country: None (occurrence: None)
  Receive Date: 20080201
  Receipt Date: 20080124
  Transmission Date: 20080703
  Serious: Yes (Death)
  Sender: FDA-Public Use
  Company Number: CA-ELI_LILLY_AND_COMPANY-CA200801005538

PATIENT
  Sex: Female

DRUGS (2)
  1. GLUCAGON [Suspect]
     Route: 058
  2. BETA BLOCKING AGENTS [Concomitant]

REACTIONS (1)
  - DEATH [None]
